FAERS Safety Report 23779927 (Version 1)
Quarter: 2024Q2

REPORT INFORMATION
  Report Type: Spontaneous
  Country: US (occurrence: US)
  Receive Date: 20240424
  Receipt Date: 20240424
  Transmission Date: 20240716
  Serious: No
  Sender: FDA-Public Use
  Company Number: US-PFIZER INC-202400064000

PATIENT
  Age: 21 Year
  Sex: Female

DRUGS (5)
  1. CIBINQO [Suspect]
     Active Substance: ABROCITINIB
     Indication: Dermatitis atopic
     Dosage: TAKE ONE TABLET BY MOUTH DAILY.
     Route: 048
  2. CIBINQO [Suspect]
     Active Substance: ABROCITINIB
     Indication: Pruritus
  3. CIBINQO [Suspect]
     Active Substance: ABROCITINIB
     Indication: Erythema
  4. CIBINQO [Suspect]
     Active Substance: ABROCITINIB
     Indication: Eczema
  5. CIBINQO [Suspect]
     Active Substance: ABROCITINIB
     Indication: Lichenification

REACTIONS (1)
  - Hypersensitivity [Unknown]
